FAERS Safety Report 7822127-4 (Version None)
Quarter: 2011Q4

REPORT INFORMATION
  Report Type: 
  Country: None (occurrence: None)
  Receive Date: 20111018
  Receipt Date: 20111010
  Transmission Date: 20120403
  Serious: Yes (Life-Threatening, Hospitalization)
  Sender: FDA-Public Use
  Company Number: US-CELGENEUS-163-21880-11093602

PATIENT
  Sex: Male

DRUGS (10)
  1. PEPCID [Concomitant]
     Dosage: 20 MILLIGRAM
     Route: 065
  2. PRAVACHOL [Concomitant]
     Dosage: 40 MILLIGRAM
     Route: 048
  3. DEXAMETHASONE [Concomitant]
     Dosage: 8 MILLIGRAM
     Route: 048
  4. LAMICTAL [Concomitant]
     Dosage: 300 MILLIGRAM
     Route: 065
  5. NITROGLYCERIN [Concomitant]
     Indication: CHEST PAIN
     Route: 065
  6. REVLIMID [Suspect]
     Indication: MULTIPLE MYELOMA
     Dosage: 15 MILLIGRAM
     Route: 048
     Dates: start: 20100322
  7. ASPIRIN [Concomitant]
     Dosage: 325 MILLIGRAM
     Route: 048
  8. EFFIENT [Concomitant]
     Dosage: 10 MILLIGRAM
     Route: 065
  9. CYMBALTA [Concomitant]
     Dosage: 60 MILLIGRAM
     Route: 048
  10. WARFARIN SODIUM [Concomitant]
     Dosage: 5 MILLIGRAM
     Route: 048

REACTIONS (1)
  - MYOCARDIAL INFARCTION [None]
